FAERS Safety Report 7599434-6 (Version None)
Quarter: 2011Q3

REPORT INFORMATION
  Report Type: 
  Country: None (occurrence: None)
  Receive Date: 20110711
  Receipt Date: 20100730
  Transmission Date: 20111222
  Serious: No
  Sender: FDA-Public Use
  Company Number: US-BAYER-201032052NA

PATIENT
  Sex: Female

DRUGS (2)
  1. MIRENA [Suspect]
     Indication: CONTRACEPTION
     Dosage: 20 MCG/24HR, CONT
     Route: 015
     Dates: start: 20100713
  2. MIRENA [Suspect]
     Indication: MENORRHAGIA

REACTIONS (9)
  - DIARRHOEA [None]
  - GENITAL DISCHARGE [None]
  - NAUSEA [None]
  - URINARY TRACT INFECTION [None]
  - VAGINAL HAEMORRHAGE [None]
  - PYREXIA [None]
  - DECREASED APPETITE [None]
  - VOMITING [None]
  - INFLUENZA LIKE ILLNESS [None]
